FAERS Safety Report 26054213 (Version 1)
Quarter: 2025Q4

REPORT INFORMATION
  Report Type: Spontaneous
  Country: US (occurrence: US)
  Receive Date: 20251117
  Receipt Date: 20251117
  Transmission Date: 20260119
  Serious: No
  Sender: ROCHE
  Company Number: US-ROCHE-10000434180

PATIENT
  Sex: Male

DRUGS (6)
  1. XOLAIR PFS [Suspect]
     Active Substance: OMALIZUMAB
     Indication: Idiopathic urticaria
     Route: 058
  2. XOLAIR PFS [Suspect]
     Active Substance: OMALIZUMAB
  3. MONTELUKAST TAB 10 MG [Concomitant]
     Route: 048
  4. ALLEGRA ALLE TAB 180 MG [Concomitant]
     Route: 048
  5. BENADRYL ALL TAB 25 MG [Concomitant]
     Route: 048
  6. LOSARTAN POT TAB 50 mg [Concomitant]
     Route: 048

REACTIONS (2)
  - Chapped lips [Not Recovered/Not Resolved]
  - Peripheral coldness [Not Recovered/Not Resolved]
